FAERS Safety Report 5276697-3 (Version None)
Quarter: 2007Q1

REPORT INFORMATION
  Report Type: 
  Country: None (occurrence: None)
  Receive Date: 20070327
  Receipt Date: 20070316
  Transmission Date: 20070707
  Serious: Yes (Other)
  Sender: FDA-Public Use
  Company Number: US-BAYER-200710825BCC

PATIENT
  Age: 72 Year
  Sex: Female
  Weight: 100 kg

DRUGS (3)
  1. ALEVE [Suspect]
     Indication: ARTHRITIS
     Dosage: TOTAL DAILY DOSE: 220 MG  UNIT DOSE: 220 MG
     Route: 048
     Dates: start: 20070201, end: 20070301
  2. LIPITOR [Concomitant]
  3. LEVOXYL [Concomitant]

REACTIONS (3)
  - METRORRHAGIA [None]
  - MUSCLE SPASMS [None]
  - VAGINAL HAEMORRHAGE [None]
